FAERS Safety Report 21590263 (Version 1)
Quarter: 2022Q4

REPORT INFORMATION
  Report Type: Report from Study
  Country: US (occurrence: US)
  Receive Date: 20221114
  Receipt Date: 20221114
  Transmission Date: 20230113
  Serious: Yes (Other)
  Sender: FDA-Public Use
  Company Number: US-ABBVIE-20K-163-3651988-00

PATIENT
  Sex: Female

DRUGS (2)
  1. IMBRUVICA [Suspect]
     Active Substance: IBRUTINIB
     Indication: Chronic lymphocytic leukaemia
     Route: 048
     Dates: start: 202007, end: 20210224
  2. IMBRUVICA [Suspect]
     Active Substance: IBRUTINIB
     Indication: Chronic lymphocytic leukaemia
     Route: 048
     Dates: start: 20200311

REACTIONS (16)
  - Hysterectomy [Unknown]
  - Feeling abnormal [Unknown]
  - Irritability [Unknown]
  - Impaired healing [Unknown]
  - Urine odour abnormal [Unknown]
  - Lymph node pain [Recovering/Resolving]
  - Nausea [Unknown]
  - Constipation [Unknown]
  - Diarrhoea [Unknown]
  - Rash [Unknown]
  - Myalgia [Unknown]
  - Pruritus [Unknown]
  - Fatigue [Unknown]
  - Cardiac flutter [Unknown]
  - Bone pain [Unknown]
  - Crying [Unknown]

NARRATIVE: CASE EVENT DATE: 20200101
